FAERS Safety Report 15232534 (Version 2)
Quarter: 2020Q4

REPORT INFORMATION
  Report Type: Spontaneous
  Country: DE (occurrence: DE)
  Receive Date: 20180802
  Receipt Date: 20201008
  Transmission Date: 20210113
  Serious: Yes (Death, Other)
  Sender: FDA-Public Use
  Company Number: PHHY2017DE204404

PATIENT
  Sex: Male

DRUGS (19)
  1. AMPHOTERICIN B. [Suspect]
     Active Substance: AMPHOTERICIN B
     Indication: ASPERGILLUS INFECTION
     Dosage: 3 MG/KG, QD (SINCE DAY -6)
     Route: 042
     Dates: start: 201409, end: 201409
  2. CYTARABINE. [Concomitant]
     Active Substance: CYTARABINE
     Dosage: 2 UNK, QD (2000 MG/M2/DAY B.I.D., DAYS 1 AND 5)
     Route: 042
     Dates: start: 201408
  3. IDARUBICIN HYDROCHLORIDE. [Concomitant]
     Active Substance: IDARUBICIN HYDROCHLORIDE
     Indication: ACUTE MYELOID LEUKAEMIA
     Dosage: 12 MG/M2, QD (DAYS 2, 4 AND 6)
     Route: 042
     Dates: start: 201405
  4. ETOPOSIDE. [Concomitant]
     Active Substance: ETOPOSIDE
     Indication: ACUTE MYELOID LEUKAEMIA
     Dosage: 100 MG/M2,QD (DAYS 3 TO 7)
     Route: 042
     Dates: start: 201405
  5. VORICONAZOLE. [Suspect]
     Active Substance: VORICONAZOLE
     Dosage: 8 MG/KG, QD
     Route: 042
     Dates: start: 201409, end: 201409
  6. AMPHOTERICIN B. [Suspect]
     Active Substance: AMPHOTERICIN B
     Indication: ANTIFUNGAL TREATMENT
  7. VORICONAZOLE. [Suspect]
     Active Substance: VORICONAZOLE
     Indication: ASPERGILLUS INFECTION
     Dosage: 4 MG/KG, QD (8 MG/KG/DAY, EVERY DAY)
     Route: 042
     Dates: start: 201409, end: 201409
  8. CASPOFUNGIN ACETATE. [Suspect]
     Active Substance: CASPOFUNGIN ACETATE
     Dosage: 50 MG, QD (200 MG EVERYDAY)
     Route: 042
     Dates: start: 201409
  9. CYTARABINE. [Concomitant]
     Active Substance: CYTARABINE
     Indication: ACUTE MYELOID LEUKAEMIA
     Dosage: 100 MG/M2, QD (DAYS 1 TO 7)
     Route: 042
     Dates: start: 201405
  10. MELPHALAN. [Concomitant]
     Active Substance: MELPHALAN
     Indication: BONE MARROW CONDITIONING REGIMEN
     Dosage: 150 MG/M2, ON (DAY -2)
     Route: 042
     Dates: start: 201409
  11. DECITABINE. [Concomitant]
     Active Substance: DECITABINE
     Indication: ACUTE MYELOID LEUKAEMIA
     Dosage: 20 MG/M2, QD (DAYS 1 TO 5)
     Route: 042
     Dates: start: 2014
  12. MITOXANTRONE HYDROCHLORIDE. [Concomitant]
     Active Substance: MITOXANTRONE HYDROCHLORIDE
     Indication: ACUTE MYELOID LEUKAEMIA
     Dosage: 30 MG/M2, QD (DAYS 1 AND 5)
     Route: 042
     Dates: start: 201408
  13. CASPOFUNGIN ACETATE. [Suspect]
     Active Substance: CASPOFUNGIN ACETATE
     Indication: ANTIFUNGAL TREATMENT
     Dosage: 70 MG, QD (LOADING DOSE)
     Route: 042
     Dates: start: 201409, end: 201409
  14. FLUDARABINE PHOSPHATE. [Concomitant]
     Active Substance: FLUDARABINE PHOSPHATE
     Indication: BONE MARROW CONDITIONING REGIMEN
     Dosage: 30 MG/M2, QD (DAYS -6 TO -2)
     Route: 016
     Dates: start: 201409
  15. VORICONAZOLE. [Suspect]
     Active Substance: VORICONAZOLE
     Indication: ANTIFUNGAL TREATMENT
     Dosage: 6 MG/KG, QD (6 MG/KG/DAY, BID, LOADING DOSE, 12MG/KG EVERY DAY)
     Route: 042
     Dates: start: 201409, end: 201409
  16. CASPOFUNGIN ACETATE. [Suspect]
     Active Substance: CASPOFUNGIN ACETATE
     Dosage: 200 MG, QD
     Route: 042
     Dates: start: 201409
  17. POSACONAZOLE [Suspect]
     Active Substance: POSACONAZOLE
     Indication: ANTIFUNGAL PROPHYLAXIS
     Dosage: 600 MG, TID
     Route: 048
     Dates: start: 201405
  18. POSACONAZOLE [Suspect]
     Active Substance: POSACONAZOLE
     Dosage: 200 MG, QD (600 MG EVERY DAY)
     Route: 048
     Dates: start: 201405
  19. ANTILYMPHOCYTE IMMUNOGLOBULIN [Concomitant]
     Active Substance: THYMOCYTE IMMUNE GLOBULIN NOS
     Indication: BONE MARROW CONDITIONING REGIMEN
     Dosage: 10 MG/KG, QD (DAYS -5 TO -2)
     Route: 042
     Dates: start: 201409

REACTIONS (5)
  - Bronchopulmonary aspergillosis [Fatal]
  - Drug ineffective [Fatal]
  - Cerebral aspergillosis [Fatal]
  - Aspergillus infection [Fatal]
  - Drug resistance [Fatal]
